FAERS Safety Report 10108957 (Version 2)
Quarter: 2014Q2

REPORT INFORMATION
  Report Type: Spontaneous
  Country: US (occurrence: US)
  Receive Date: 20140425
  Receipt Date: 20140618
  Transmission Date: 20141212
  Serious: No
  Sender: FDA-Public Use
  Company Number: US-JNJFOC-20140319321

PATIENT
  Sex: Male

DRUGS (1)
  1. INVEGA [Suspect]
     Indication: PRODUCT USED FOR UNKNOWN INDICATION
     Route: 048

REACTIONS (7)
  - Hepatic enzyme increased [Unknown]
  - Blood triglycerides increased [Unknown]
  - Penile discharge [Unknown]
  - Penile pain [Not Recovered/Not Resolved]
  - Skin discolouration [Unknown]
  - Hallucination, auditory [Recovered/Resolved]
  - Anxiety [Unknown]
